FAERS Safety Report 9920151 (Version 1)
Quarter: 2014Q1

REPORT INFORMATION
  Report Type: Spontaneous
  Country: DE (occurrence: DE)
  Receive Date: 20140224
  Receipt Date: 20140224
  Transmission Date: 20141002
  Serious: Yes (Other)
  Sender: FDA-Public Use
  Company Number: DE-NAPPMUNDI-DEU-2014-0013718

PATIENT
  Age: 43 Year
  Sex: Female

DRUGS (1)
  1. MSI MUNDIPHARMA [Suspect]
     Indication: NECK PAIN
     Dosage: UNK
     Route: 042
     Dates: start: 1994, end: 20140209

REACTIONS (4)
  - Tooth loss [Unknown]
  - Tooth disorder [Unknown]
  - Somnolence [Unknown]
  - Inadequate analgesia [Unknown]
